FAERS Safety Report 5927514-7 (Version None)
Quarter: 2008Q4

REPORT INFORMATION
  Report Type: 
  Country: None (occurrence: None)
  Receive Date: 20081020
  Receipt Date: 20081007
  Transmission Date: 20090506
  Serious: Yes (Hospitalization)
  Sender: FDA-Public Use
  Company Number: 230385K08USA

PATIENT
  Age: 62 Year
  Sex: Female

DRUGS (1)
  1. REBIF [Suspect]
     Indication: MULTIPLE SCLEROSIS
     Dosage: 8.8 MCG, 3 IN 1 WEEKS, SUBCUTANEOUS
     Route: 058
     Dates: start: 20081002

REACTIONS (6)
  - BACK PAIN [None]
  - CYSTITIS [None]
  - DISTURBANCE IN ATTENTION [None]
  - HEADACHE [None]
  - MUSCLE SPASMS [None]
  - TREMOR [None]
